FAERS Safety Report 4926289-8 (Version None)
Quarter: 2006Q1

REPORT INFORMATION
  Report Type: 
  Country: None (occurrence: None)
  Receive Date: 20060228
  Receipt Date: 20051229
  Transmission Date: 20060701
  Serious: No
  Sender: FDA-Public Use
  Company Number: US-GLAXOSMITHKLINE-A0587355A

PATIENT
  Sex: Male
  Weight: 77.3 kg

DRUGS (6)
  1. LAMICTAL [Suspect]
     Indication: EPILEPSY
     Dosage: 250MG TWICE PER DAY
     Route: 048
     Dates: start: 20051225, end: 20051229
  2. FLOMAX [Concomitant]
  3. HYDRALAZINE [Concomitant]
  4. PROTONIX [Concomitant]
  5. ATENOLOL [Concomitant]
  6. DILANTIN [Concomitant]
     Dosage: 900MG PER DAY
     Route: 065

REACTIONS (2)
  - BRADYCARDIA [None]
  - INCORRECT DOSE ADMINISTERED [None]
